FAERS Safety Report 7809976-3 (Version None)
Quarter: 2011Q4

REPORT INFORMATION
  Report Type: 
  Country: None (occurrence: None)
  Receive Date: 20111012
  Receipt Date: 20111007
  Transmission Date: 20120403
  Serious: Yes (Hospitalization, Disabling, Other)
  Sender: FDA-Public Use
  Company Number: US-ABBOTT-11P-163-0841291-00

PATIENT
  Age: 43 Year
  Sex: Female
  Weight: 81.72 kg

DRUGS (13)
  1. LYRICA [Suspect]
     Indication: FIBROMYALGIA
  2. XANAX [Suspect]
     Indication: SLEEP DISORDER
  3. MOTRIN [Suspect]
     Indication: PAIN
  4. CELEXA [Suspect]
     Indication: DEPRESSION
     Dosage: UNKNOWN
  5. VICODIN [Suspect]
     Indication: PAIN
  6. MOTRIN [Suspect]
     Indication: FALL
     Dosage: 3 TO 4 TIMES PER DAY
  7. VICODIN [Suspect]
     Indication: FALL
     Dosage: UNKNOWN
  8. XANAX [Suspect]
     Indication: ANXIOLYTIC THERAPY
  9. COMBINATION PILL OF LISINOPRIL AND SOME FLUID PILL [Suspect]
     Indication: BLOOD PRESSURE ABNORMAL
     Dosage: 10/12.5 MG UNKNOW FREQUENCY
  10. XANAX [Suspect]
     Indication: PAIN
  11. SOMA [Suspect]
     Indication: PAIN
     Dosage: UNKNOWN
  12. SOMA [Suspect]
     Indication: FALL
  13. ASPIRIN [Suspect]
     Indication: PRODUCT USED FOR UNKNOWN INDICATION
     Dosage: UNKNOWN

REACTIONS (9)
  - HYPOAESTHESIA [None]
  - BLINDNESS UNILATERAL [None]
  - FALL [None]
  - TRANSIENT ISCHAEMIC ATTACK [None]
  - HEADACHE [None]
  - FEELING ABNORMAL [None]
  - PAIN [None]
  - ABDOMINAL DISCOMFORT [None]
  - H1N1 INFLUENZA [None]
